FAERS Safety Report 9211044 (Version 1)
Quarter: 2013Q2

REPORT INFORMATION
  Report Type: Spontaneous
  Country: US (occurrence: US)
  Receive Date: 20130404
  Receipt Date: 20130404
  Transmission Date: 20140414
  Serious: Yes (Other)
  Sender: FDA-Public Use
  Company Number: US-BAYER-2013-039155

PATIENT
  Sex: 0

DRUGS (1)
  1. ALEVE CAPLET [Suspect]
     Dosage: 2400MG A DAY FOR UP TO FOUR WEEKS
     Route: 048

REACTIONS (4)
  - Apparent death [None]
  - Haemorrhage [None]
  - Overdose [None]
  - Incorrect drug administration duration [None]
